FAERS Safety Report 25088585 (Version 2)
Quarter: 2025Q3

REPORT INFORMATION
  Report Type: Spontaneous
  Country: CA (occurrence: None)
  Receive Date: 20250318
  Receipt Date: 20250725
  Transmission Date: 20251020
  Serious: Yes (Other)
  Sender: ORION
  Company Number: CA-PFIZER INC-202500054481

PATIENT
  Age: 79 Year
  Sex: Female
  Weight: 60.771 kg

DRUGS (6)
  1. METHOTREXATE [Suspect]
     Active Substance: METHOTREXATE
     Indication: Psoriatic arthropathy
     Dates: start: 2006
  2. ASPIRIN [Concomitant]
     Active Substance: ASPIRIN
  3. FOLIC ACID [Concomitant]
     Active Substance: FOLIC ACID
  4. NITROGLYCERIN [Concomitant]
     Active Substance: NITROGLYCERIN
  5. SYNTHROID [Concomitant]
     Active Substance: LEVOTHYROXINE SODIUM
     Indication: Thyroid disorder
  6. ABRILADA [Concomitant]
     Active Substance: ADALIMUMAB-AFZB
     Indication: Psoriatic arthropathy
     Dates: start: 20250402

REACTIONS (6)
  - Myocardial infarction [Unknown]
  - Lung cyst [Unknown]
  - Renal cyst [Unknown]
  - Drug ineffective [Unknown]
  - Breath odour [Unknown]
  - Paranasal cyst [Unknown]

NARRATIVE: CASE EVENT DATE: 20090101
